FAERS Safety Report 15518006 (Version 1)
Quarter: 2018Q4

REPORT INFORMATION
  Report Type: Spontaneous
  Country: US (occurrence: US)
  Receive Date: 20181012
  Receipt Date: 20181012
  Transmission Date: 20190205
  Serious: No
  Sender: FDA-Public Use
  Company Number: None

PATIENT
  Age: 68 Year

DRUGS (1)
  1. TALTZ [Suspect]
     Active Substance: IXEKIZUMAB
     Dosage: ?          OTHER FREQUENCY:EVERY 4 WKS AS DIR;?
     Route: 058
     Dates: start: 201711

REACTIONS (2)
  - Therapeutic response shortened [None]
  - Condition aggravated [None]
